FAERS Safety Report 4355943-4 (Version None)
Quarter: 2004Q2

REPORT INFORMATION
  Report Type: 
  Country: None (occurrence: None)
  Receive Date: 20040507
  Receipt Date: 20040507
  Transmission Date: 20050107
  Serious: Yes (Hospitalization)
  Sender: FDA-Public Use
  Company Number: None

PATIENT
  Age: 76 Year
  Sex: Male

DRUGS (6)
  1. WARFARIN SODIUM [Suspect]
     Indication: ANTICOAGULANT THERAPY
     Dosage: 5 MG DAILY ORAL
     Route: 048
     Dates: start: 20040316, end: 20040402
  2. ENOXAPARIN SODIUM [Concomitant]
  3. TERAZOSIN HCL [Concomitant]
  4. FINASTERIDE [Concomitant]
  5. DILTIAZEM [Concomitant]
  6. FUROSEMIDE [Concomitant]

REACTIONS (7)
  - ATRIAL FIBRILLATION [None]
  - COAGULOPATHY [None]
  - CONTUSION [None]
  - FAECES DISCOLOURED [None]
  - HAEMORRHAGE [None]
  - LOOSE STOOLS [None]
  - MEDICATION ERROR [None]
